FAERS Safety Report 9060444 (Version 2)
Quarter: 2013Q2

REPORT INFORMATION
  Report Type: Report from Study
  Country: JP (occurrence: JP)
  Receive Date: 20130212
  Receipt Date: 20130412
  Transmission Date: 20140414
  Serious: Yes (Death, Hospitalization, Disabling, Other)
  Sender: FDA-Public Use
  Company Number: JP-BRISTOL-MYERS SQUIBB COMPANY-16329567

PATIENT
  Age: 79 Year
  Sex: Male

DRUGS (14)
  1. SPRYCEL [Suspect]
     Indication: CHRONIC MYELOID LEUKAEMIA
     Dosage: 50MG:10FEB-9MAR10,4APR-21JUN10,29JUN10-ONG,27AP11-17FEB12,70MG:18FEB-13MAR12?20MG/DAY24MAR10-ONG
     Route: 048
     Dates: start: 20091118
  2. CORTRIL [Concomitant]
     Route: 048
  3. THYRADIN S [Concomitant]
     Dosage: 75MCG ON CONT-27DEC11?50MCG 28DEC11-13MAR12
     Route: 048
  4. SLOW-K [Concomitant]
     Route: 048
     Dates: end: 20110329
  5. LASIX [Concomitant]
     Dosage: 120MG/DAY 14SEP11-ONG?INJ,IV,40MG,PRIOR TO SPRYCEL-20NOV09
     Route: 048
     Dates: end: 20110913
  6. GASLON N [Concomitant]
     Route: 048
     Dates: end: 20110222
  7. LACB [Concomitant]
     Indication: ANTIBIOTIC PROPHYLAXIS
     Dosage: POWDER
     Route: 048
     Dates: start: 20091118, end: 20101219
  8. TAKEPRON [Concomitant]
     Indication: PROPHYLAXIS
     Dosage: 15MG/DAY-3FEB-19JUL-11, 12OCT11-ONG.?28JAN11
     Route: 048
     Dates: start: 20110126, end: 20120313
  9. BENAMBAX [Concomitant]
     Indication: INFECTION PROPHYLAXIS
     Dosage: 300MG/DAY WITH 20ML OF WATER 9MAR-9MAR11, 30MAR-30MAR11, 27APR-27APR11
     Dates: start: 20110223, end: 20110223
  10. BAKTAR [Concomitant]
     Indication: INFECTION PROPHYLAXIS
     Dosage: TABS
     Route: 048
     Dates: start: 20110211, end: 20110220
  11. ALDACTONE-A [Concomitant]
     Route: 048
     Dates: start: 20110330
  12. GASTER D [Concomitant]
     Indication: GASTRITIS PROPHYLAXIS
     Route: 048
     Dates: start: 20110720, end: 20111011
  13. EPOGIN [Concomitant]
     Indication: CHRONIC MYELOID LEUKAEMIA
     Dosage: 12000IU/DAY. 15DEC-15DEC10, 27DEC-27DEC10, 26JAN-26JAN11, 9FEB-9FEB11, 23FEB-23FEB11, 9MAR-9MAR11.
     Route: 058
     Dates: start: 20101201, end: 20101201
  14. PARIET [Concomitant]
     Indication: GASTRITIS
     Dosage: TAB
     Route: 048
     Dates: start: 20100804, end: 20100824

REACTIONS (5)
  - Acute respiratory failure [Fatal]
  - Pleural effusion [Not Recovered/Not Resolved]
  - Hyperuricaemia [Not Recovered/Not Resolved]
  - Pneumothorax [Unknown]
  - Pneumonia [Not Recovered/Not Resolved]
